FAERS Safety Report 19042556 (Version 1)
Quarter: 2021Q1

REPORT INFORMATION
  Report Type: Spontaneous
  Country: CA (occurrence: CA)
  Receive Date: 20210323
  Receipt Date: 20210323
  Transmission Date: 20210420
  Serious: Yes (Other)
  Sender: FDA-Public Use
  Company Number: CA-TILLOMEDPR-2021-EPL-000846

PATIENT
  Age: 8 Year
  Sex: Female
  Weight: 27 kg

DRUGS (7)
  1. LABETALOL [Concomitant]
     Active Substance: LABETALOL\LABETALOL HYDROCHLORIDE
  2. ZOLEDRONIC ACID [Suspect]
     Active Substance: ZOLEDRONIC ACID
     Indication: OSTEOPOROSIS
     Dosage: UNK, ONCE
     Route: 042
  3. NITROFURANTOIN. [Concomitant]
     Active Substance: NITROFURANTOIN
  4. VITAMIN D [Concomitant]
     Active Substance: VITAMIN D NOS
  5. AMLODIPINE [Concomitant]
     Active Substance: AMLODIPINE BESYLATE
  6. ENALAPRIL [Concomitant]
     Active Substance: ENALAPRIL
  7. ONDANSETRON [Concomitant]
     Active Substance: ONDANSETRON

REACTIONS (6)
  - Headache [Recovered/Resolved]
  - Off label use [Unknown]
  - Decreased appetite [Recovered/Resolved]
  - Pyrexia [Recovered/Resolved]
  - Burning sensation [Recovered/Resolved]
  - Bone pain [Recovered/Resolved]
